FAERS Safety Report 18544178 (Version 2)
Quarter: 2020Q4

REPORT INFORMATION
  Report Type: Spontaneous
  Country: US (occurrence: US)
  Receive Date: 20201125
  Receipt Date: 20201212
  Transmission Date: 20210114
  Serious: No
  Sender: FDA-Public Use
  Company Number: US-GLAXOSMITHKLINE-US2020227528

PATIENT
  Sex: Male

DRUGS (1)
  1. BREO ELLIPTA [Suspect]
     Active Substance: FLUTICASONE FUROATE\VILANTEROL TRIFENATATE
     Indication: ASTHMA
     Dosage: 1 PUFF(S), 1D, 100/25MCG
     Route: 055
     Dates: start: 2017

REACTIONS (5)
  - Productive cough [Recovered/Resolved]
  - Respiratory tract congestion [Recovered/Resolved]
  - Product dose omission issue [Unknown]
  - Secretion discharge [Recovered/Resolved]
  - Product complaint [Unknown]
